FAERS Safety Report 4840397-1 (Version None)
Quarter: 2005Q4

REPORT INFORMATION
  Report Type: 
  Country: None (occurrence: None)
  Receive Date: 20051024
  Receipt Date: 20040223
  Transmission Date: 20060501
  Serious: Yes (Death)
  Sender: FDA-Public Use
  Company Number: USA-2004-0013312

PATIENT
  Age: 27 Year
  Sex: Male
  Weight: 119.7 kg

DRUGS (7)
  1. HYDROMORPHONE HYDROCHLORIDE [Suspect]
  2. ETHANOL (ETHANOL) [Suspect]
  3. COCAINE (COCAINE) [Suspect]
  4. CODEINE (CODEINE) [Suspect]
  5. METHADONE (METHADONE) [Suspect]
  6. DIAZEPAM [Suspect]
  7. TEMAZEPAM [Suspect]

REACTIONS (1)
  - MULTIPLE DRUG OVERDOSE ACCIDENTAL [None]
